FAERS Safety Report 5204623-1 (Version None)
Quarter: 2007Q1

REPORT INFORMATION
  Report Type: 
  Country: None (occurrence: None)
  Receive Date: 20070110
  Receipt Date: 20060524
  Transmission Date: 20070707
  Serious: No
  Sender: FDA-Public Use
  Company Number: US-BRISTOL-MYERS SQUIBB COMPANY-13389614

PATIENT
  Age: 59 Year
  Sex: Female
  Weight: 69 kg

DRUGS (6)
  1. ABILIFY [Suspect]
     Indication: HYPOMANIA
     Route: 048
     Dates: start: 20060320, end: 20060423
  2. ACTIVELLA [Concomitant]
  3. MINOCYCLINE HCL [Concomitant]
  4. LUNESTA [Concomitant]
  5. CALCIUM [Concomitant]
  6. MULTI-VITAMIN [Concomitant]

REACTIONS (2)
  - APATHY [None]
  - WEIGHT INCREASED [None]
